FAERS Safety Report 18083769 (Version 1)
Quarter: 2020Q3

REPORT INFORMATION
  Report Type: Spontaneous
  Country: FI (occurrence: FI)
  Receive Date: 20200729
  Receipt Date: 20200729
  Transmission Date: 20201103
  Serious: No
  Sender: FDA-Public Use
  Company Number: FI-ALKEM LABORATORIES LIMITED-FI-ALKEM-2019-05954

PATIENT

DRUGS (1)
  1. CEFUROXIME AXETIL. [Suspect]
     Active Substance: CEFUROXIME AXETIL
     Indication: ANTIBIOTIC PROPHYLAXIS
     Dosage: 50 MG/ML

REACTIONS (7)
  - Colour blindness acquired [Unknown]
  - Corneal oedema [Recovering/Resolving]
  - Product preparation issue [Unknown]
  - Visual field defect [Unknown]
  - Off label use [Unknown]
  - Incorrect dose administered [Unknown]
  - Intraocular pressure increased [Recovered/Resolved]
